FAERS Safety Report 8574889 (Version 4)
Quarter: 2013Q3

REPORT INFORMATION
  Report Type: Report from Study
  Country: JP (occurrence: JP)
  Receive Date: 20120523
  Receipt Date: 20130815
  Transmission Date: 20140515
  Serious: Yes (Hospitalization)
  Sender: FDA-Public Use
  Company Number: JP-VERTEX PHARMACEUTICALS INC.-AE-2012-007326

PATIENT
  Age: 68 Year
  Sex: Female

DRUGS (6)
  1. VX-950 (TELAPREVIR) [Suspect]
     Indication: CHRONIC HEPATITIS C
     Dosage: 1500 MG, QD
     Route: 048
     Dates: start: 20120502, end: 20120506
  2. PEGINTRON [Suspect]
     Indication: CHRONIC HEPATITIS C
     Dosage: 1.5 ?G/KG, QW
     Route: 058
     Dates: start: 20120502, end: 20120502
  3. REBETOL [Suspect]
     Indication: CHRONIC HEPATITIS C
     Dosage: 200 MG, QD
     Route: 048
     Dates: start: 20120502, end: 20120506
  4. ADALAT-CR [Concomitant]
     Dosage: 40 MG, QD
     Route: 048
     Dates: start: 20120502, end: 20120507
  5. OLMETEC [Concomitant]
     Dosage: 20 MG, QD
     Route: 048
     Dates: start: 20120502, end: 20120507
  6. MOHRUS TAPE [Concomitant]
     Dosage: 7 DF, PRN
     Route: 061
     Dates: start: 20120503

REACTIONS (1)
  - Renal impairment [Recovered/Resolved]
